FAERS Safety Report 24663825 (Version 1)
Quarter: 2024Q4

REPORT INFORMATION
  Report Type: Report from Study
  Country: US (occurrence: US)
  Receive Date: 20241126
  Receipt Date: 20241126
  Transmission Date: 20250115
  Serious: Yes (Hospitalization, Disabling)
  Sender: BOEHRINGER INGELHEIM
  Company Number: US-BoehringerIngelheim-2024-BI-030918

PATIENT
  Age: 98 Year
  Sex: Male

DRUGS (1)
  1. OFEV [Suspect]
     Active Substance: NINTEDANIB
     Indication: Idiopathic pulmonary fibrosis
     Route: 048
     Dates: start: 20240207

REACTIONS (9)
  - Haemoglobin decreased [Unknown]
  - Pneumonia [Unknown]
  - Eye infection [Unknown]
  - Musculoskeletal pain [Unknown]
  - Faeces discoloured [Unknown]
  - Internal haemorrhage [Unknown]
  - Cough [Unknown]
  - Fatigue [Unknown]
  - Rhinorrhoea [Unknown]

NARRATIVE: CASE EVENT DATE: 20240201
